FAERS Safety Report 7444600-3 (Version None)
Quarter: 2011Q2

REPORT INFORMATION
  Report Type: 
  Country: None (occurrence: None)
  Receive Date: 20110429
  Receipt Date: 20110414
  Transmission Date: 20111010
  Serious: Yes (Hospitalization, Other)
  Sender: FDA-Public Use
  Company Number: FR-AMGEN-US289701

PATIENT
  Age: 63 Year
  Sex: Male

DRUGS (3)
  1. CORTANCYL [Concomitant]
     Dosage: UNK
  2. ENBREL [Suspect]
     Indication: ANKYLOSING SPONDYLITIS
     Dosage: 50 MG, QWK
     Route: 058
     Dates: start: 20050901, end: 20080401
  3. AREDIA [Concomitant]
     Dosage: UNK

REACTIONS (1)
  - PROSTATE CANCER [None]
